FAERS Safety Report 9373101 (Version 1)
Quarter: 2013Q2

REPORT INFORMATION
  Report Type: Spontaneous
  Country: DE (occurrence: DE)
  Receive Date: 20130627
  Receipt Date: 20130627
  Transmission Date: 20140414
  Serious: Yes (Other)
  Sender: FDA-Public Use
  Company Number: DE-ELI_LILLY_AND_COMPANY-DE201306006352

PATIENT
  Age: 72 Year
  Sex: Female

DRUGS (6)
  1. HUMALOG 25% LISPRO, 75% NPL [Suspect]
     Indication: DIABETES MELLITUS
     Dosage: UNK
     Route: 058
     Dates: start: 2010
  2. HUMALOG 50% LISPRO, 50% NPL [Suspect]
     Indication: DIABETES MELLITUS
     Dosage: UNK
     Route: 058
     Dates: start: 2010
  3. BELOC ZOK [Concomitant]
  4. LORZAAR [Concomitant]
  5. TORASEMID [Concomitant]
  6. AMIODARON [Concomitant]

REACTIONS (1)
  - Cardiac failure [Not Recovered/Not Resolved]
